FAERS Safety Report 7605137-1 (Version None)
Quarter: 2011Q3

REPORT INFORMATION
  Report Type: 
  Country: None (occurrence: None)
  Receive Date: 20110713
  Receipt Date: 20110405
  Transmission Date: 20111222
  Serious: Yes (Death, Hospitalization)
  Sender: FDA-Public Use
  Company Number: US-BAYER-2011-027343

PATIENT
  Age: 72 Year
  Sex: Female

DRUGS (6)
  1. SORAFENIB (RAF KINASE INHIBITOR) [Suspect]
     Indication: LUNG NEOPLASM MALIGNANT
     Dosage: 200 MG, BID
     Route: 048
     Dates: start: 20110322, end: 20110327
  2. VITAMIN B-12 [Concomitant]
     Dosage: UNK
  3. CALCIUM CARBONATE [Concomitant]
  4. POTASSIUM [Concomitant]
  5. THYROID TAB [Concomitant]
  6. FRAGMIN [Concomitant]
     Dosage: 2500/0.2

REACTIONS (7)
  - DEATH [None]
  - FALL [None]
  - RASH ERYTHEMATOUS [None]
  - DIARRHOEA [None]
  - DIZZINESS [None]
  - VOMITING [None]
  - RASH PRURITIC [None]
